FAERS Safety Report 10717788 (Version 2)
Quarter: 2015Q1

REPORT INFORMATION
  Report Type: Spontaneous
  Country: US (occurrence: US)
  Receive Date: 20150116
  Receipt Date: 20150317
  Transmission Date: 20150721
  Serious: No
  Sender: FDA-Public Use
  Company Number: US-009507513-1412USA007742

PATIENT
  Age: 84 Year
  Sex: Male
  Weight: 96.6 kg

DRUGS (3)
  1. REMERON [Suspect]
     Active Substance: MIRTAZAPINE
     Dosage: 45 MG PER DAY
     Route: 048
     Dates: start: 201410, end: 20141212
  2. REMERON [Suspect]
     Active Substance: MIRTAZAPINE
     Indication: DEPRESSION
     Dosage: 30 MG PER DAY
     Route: 048
     Dates: start: 1999, end: 201410
  3. REMERON [Suspect]
     Active Substance: MIRTAZAPINE
     Dosage: 0.5 DF, QD (CUTTING REMERON 45 MG IN HALF)
     Route: 048
     Dates: start: 20141212

REACTIONS (3)
  - Depression [Unknown]
  - Asthenia [Not Recovered/Not Resolved]
  - Wrong technique in drug usage process [Unknown]

NARRATIVE: CASE EVENT DATE: 201409
